FAERS Safety Report 19918704 (Version 4)
Quarter: 2022Q1

REPORT INFORMATION
  Report Type: Spontaneous
  Country: JP (occurrence: JP)
  Receive Date: 20211005
  Receipt Date: 20220104
  Transmission Date: 20220424
  Serious: Yes (Hospitalization, Other)
  Sender: FDA-Public Use
  Company Number: NVSJ2021JP014729

PATIENT
  Age: 36 Year
  Sex: Female
  Weight: 76.4 kg

DRUGS (22)
  1. NEORAL [Suspect]
     Active Substance: CYCLOSPORINE
     Indication: Nephrotic syndrome
     Dosage: 100 MG
     Route: 048
     Dates: start: 20161225
  2. NEORAL [Suspect]
     Active Substance: CYCLOSPORINE
     Dosage: 75 MG
     Route: 048
  3. NEORAL [Suspect]
     Active Substance: CYCLOSPORINE
     Dosage: 50 MG
     Route: 048
     Dates: end: 20170204
  4. METHYLPREDNISOLONE [Suspect]
     Active Substance: METHYLPREDNISOLONE
     Indication: Protein urine
     Dosage: 500 MG/DAY
     Route: 041
     Dates: start: 20161214, end: 20161216
  5. METHYLPREDNISOLONE [Suspect]
     Active Substance: METHYLPREDNISOLONE
     Indication: Nephrotic syndrome
     Dosage: 500 MG/DAY
     Route: 041
     Dates: start: 20161222
  6. METHYLPREDNISOLONE [Suspect]
     Active Substance: METHYLPREDNISOLONE
     Dosage: 500 MG/DAY
     Route: 041
     Dates: start: 20170111, end: 20170113
  7. PREDONINE [Suspect]
     Active Substance: PREDNISOLONE
     Indication: Nephrotic syndrome
     Dosage: 40 MG
     Route: 048
     Dates: start: 20161122
  8. PREDONINE [Suspect]
     Active Substance: PREDNISOLONE
     Indication: Protein urine
     Dosage: 30 MG
     Route: 048
  9. PREDONINE [Suspect]
     Active Substance: PREDNISOLONE
     Dosage: 20 MG
     Route: 048
  10. PREDONINE [Suspect]
     Active Substance: PREDNISOLONE
     Dosage: 10 MG
     Route: 048
     Dates: end: 20170216
  11. ALDOMET [Concomitant]
     Active Substance: METHYLDOPA
     Indication: Gestational hypertension
     Dosage: 1000 MG
     Route: 048
     Dates: start: 20161121
  12. ALDOMET [Concomitant]
     Active Substance: METHYLDOPA
     Dosage: 1500 MG
     Route: 048
     Dates: start: 20161129
  13. ALDOMET [Concomitant]
     Active Substance: METHYLDOPA
     Dosage: 1000 MG
     Route: 048
     Dates: start: 20161220, end: 20161228
  14. FUROSEMIDE [Concomitant]
     Active Substance: FUROSEMIDE
     Indication: Product used for unknown indication
     Dosage: 40 MG
     Route: 042
  15. FUROSEMIDE [Concomitant]
     Active Substance: FUROSEMIDE
     Dosage: 20 MG
     Route: 042
  16. FUROSEMIDE [Concomitant]
     Active Substance: FUROSEMIDE
     Indication: Product used for unknown indication
     Dosage: 40 MG
     Route: 048
  17. FUROSEMIDE [Concomitant]
     Active Substance: FUROSEMIDE
     Dosage: 20 MG
     Route: 048
  18. FUROSEMIDE [Concomitant]
     Active Substance: FUROSEMIDE
     Dosage: 10 MG
     Route: 048
  19. PROSTIN E2 [Concomitant]
     Active Substance: DINOPROSTONE
     Indication: Labour induction
     Dosage: UNK
     Route: 048
  20. LEVOTHYROXINE SODIUM [Concomitant]
     Active Substance: LEVOTHYROXINE SODIUM
     Indication: Hypothyroidism
     Dosage: 50 UG
     Route: 048
     Dates: start: 20161208, end: 20161228
  21. LEVOTHYROXINE SODIUM [Concomitant]
     Active Substance: LEVOTHYROXINE SODIUM
     Indication: Foetal growth restriction
  22. HERBALS [Concomitant]
     Active Substance: HERBALS
     Indication: Product used for unknown indication
     Dosage: UNK
     Route: 065

REACTIONS (5)
  - Cellulitis [Recovered/Resolved]
  - Pyrexia [Recovered/Resolved]
  - Foetal death [Unknown]
  - Maternal exposure during pregnancy [Unknown]
  - Drug ineffective [Recovering/Resolving]

NARRATIVE: CASE EVENT DATE: 20161225
